FAERS Safety Report 12250469 (Version 1)
Quarter: 2016Q2

REPORT INFORMATION
  Report Type: Spontaneous
  Country: IT (occurrence: IT)
  Receive Date: 20160408
  Receipt Date: 20160408
  Transmission Date: 20160815
  Serious: Yes (Other)
  Sender: FDA-Public Use
  Company Number: IT-PFIZER INC-2016195347

PATIENT
  Age: 18 Year
  Sex: Female

DRUGS (4)
  1. CLIPPER [Concomitant]
     Active Substance: BECLOMETHASONE DIPROPIONATE
     Dosage: 5 MG, UNK
  2. MESALAZINA [Concomitant]
     Active Substance: MESALAMINE
     Dosage: 500 MG, UNK
  3. SALAZOPYRIN EN [Suspect]
     Active Substance: SULFASALAZINE
     Indication: INFLAMMATORY BOWEL DISEASE
     Dosage: 3 G, DAILY
     Route: 048
  4. FOLINA /00024201/ [Concomitant]
     Active Substance: FOLIC ACID
     Dosage: 5 MG, UNK

REACTIONS (2)
  - Neutropenia [Recovering/Resolving]
  - Mononucleosis syndrome [Recovering/Resolving]

NARRATIVE: CASE EVENT DATE: 20160307
